FAERS Safety Report 17996134 (Version 3)
Quarter: 2020Q3

REPORT INFORMATION
  Report Type: Spontaneous
  Country: GB (occurrence: GB)
  Receive Date: 20200708
  Receipt Date: 20200914
  Transmission Date: 20201103
  Serious: No
  Sender: FDA-Public Use
  Company Number: GB-JNJFOC-20200641652

PATIENT
  Sex: Female

DRUGS (3)
  1. DUROGESIC D?TRANS [Suspect]
     Active Substance: FENTANYL
     Indication: PRODUCT USED FOR UNKNOWN INDICATION
     Dosage: 2 X 100 MCG PATCHES??HAS?BEEN?ON?THEM?FOR?AT?LEAST?12?YEARS
     Route: 062
  2. DUROGESIC D?TRANS [Suspect]
     Active Substance: FENTANYL
  3. DUROGESIC D?TRANS [Suspect]
     Active Substance: FENTANYL

REACTIONS (4)
  - Inappropriate schedule of product administration [Unknown]
  - Product adhesion issue [Unknown]
  - Pain [Unknown]
  - Drug level decreased [Unknown]

NARRATIVE: CASE EVENT DATE: 202003
